FAERS Safety Report 5931859-4 (Version None)
Quarter: 2008Q4

REPORT INFORMATION
  Report Type: 
  Country: None (occurrence: None)
  Receive Date: 20081022
  Receipt Date: 20081014
  Transmission Date: 20090506
  Serious: Yes (Disabling, Other)
  Sender: FDA-Public Use
  Company Number: ADE2008-0348

PATIENT
  Age: 79 Year
  Sex: Female
  Weight: 83 kg

DRUGS (8)
  1. SIMVASTATIN [Suspect]
     Indication: BLOOD CHOLESTEROL INCREASED
     Dosage: 20 MG - PO
     Route: 048
     Dates: start: 20060404, end: 20080730
  2. AMLODIPINE [Concomitant]
  3. ATENOLOL [Concomitant]
  4. BUMETANIDE [Concomitant]
  5. GLYBURIDE [Concomitant]
  6. METFORMIN HCL [Concomitant]
  7. RAMIPRIL [Concomitant]
  8. ROSIGLITAZONE [Concomitant]

REACTIONS (2)
  - DISEASE RECURRENCE [None]
  - PLEURAL EFFUSION [None]
